FAERS Safety Report 23259914 (Version 1)
Quarter: 2023Q4

REPORT INFORMATION
  Report Type: Spontaneous
  Country: BE (occurrence: BE)
  Receive Date: 20231204
  Receipt Date: 20231204
  Transmission Date: 20240109
  Serious: Yes (Disabling)
  Sender: FDA-Public Use
  Company Number: BE-PFIZER INC-202300377264

PATIENT
  Age: 63 Year
  Sex: Female
  Weight: 63 kg

DRUGS (6)
  1. CIBINQO [Suspect]
     Active Substance: ABROCITINIB
     Indication: Dermatitis atopic
     Dosage: 100 MG, 1X/DAY
     Route: 048
     Dates: start: 20230818, end: 20231013
  2. CIBINQO [Suspect]
     Active Substance: ABROCITINIB
     Indication: Lichenoid keratosis
  3. NEOTIGASON [Concomitant]
     Active Substance: ACITRETIN
     Indication: Lichenoid keratosis
     Dosage: 10 MG, DAILY
     Dates: start: 2020, end: 20231015
  4. AMLODIPINE [Concomitant]
     Active Substance: AMLODIPINE BESYLATE
     Indication: Hypertension
     Dosage: 5 MG, DAILY
     Dates: start: 2017
  5. NOBITEN [NEBIVOLOL] [Concomitant]
     Indication: Hypertension
     Dosage: 5/25 MG; 1X/DAY
     Dates: start: 2017
  6. SIMVASTATIN [Concomitant]
     Active Substance: SIMVASTATIN
     Indication: Dyslipidaemia
     Dosage: 20 MG, DAILY
     Dates: start: 2017

REACTIONS (5)
  - Keratitis bacterial [Not Recovered/Not Resolved]
  - Blindness [Not Recovered/Not Resolved]
  - Eye infection staphylococcal [Not Recovered/Not Resolved]
  - Corneal abscess [Not Recovered/Not Resolved]
  - Corneal perforation [Not Recovered/Not Resolved]

NARRATIVE: CASE EVENT DATE: 20231012
